FAERS Safety Report 7726495-3 (Version None)
Quarter: 2011Q3

REPORT INFORMATION
  Report Type: 
  Country: None (occurrence: None)
  Receive Date: 20110902
  Receipt Date: 20110822
  Transmission Date: 20111222
  Serious: Yes (Hospitalization, Disabling)
  Sender: FDA-Public Use
  Company Number: PHHY2011CO76103

PATIENT
  Sex: Male

DRUGS (2)
  1. ZOLEDRONOC ACID [Suspect]
     Dosage: 5 MG, UNK
     Route: 042
     Dates: start: 20110622
  2. ENSURE [Concomitant]
     Dosage: UNK UKN, UNK

REACTIONS (3)
  - ARTHRALGIA [None]
  - MYOSITIS [None]
  - IMMOBILE [None]
